FAERS Safety Report 12076767 (Version 1)
Quarter: 2016Q1

REPORT INFORMATION
  Report Type: Spontaneous
  Country: US (occurrence: US)
  Receive Date: 20160215
  Receipt Date: 20160215
  Transmission Date: 20160526
  Serious: No
  Sender: FDA-Public Use
  Company Number: US-LPDUSPRD-20160025

PATIENT
  Age: 18 Year
  Sex: Female

DRUGS (1)
  1. INJECTAFER [Suspect]
     Active Substance: FERRIC CARBOXYMALTOSE
     Dosage: 750 MG
     Route: 065
     Dates: start: 20160108, end: 20160108

REACTIONS (3)
  - Chills [Unknown]
  - Pyrexia [Unknown]
  - Viral infection [Unknown]

NARRATIVE: CASE EVENT DATE: 20160110
